FAERS Safety Report 7214808-0 (Version None)
Quarter: 2011Q1

REPORT INFORMATION
  Report Type: 
  Country: None (occurrence: None)
  Receive Date: 20110107
  Receipt Date: 20100308
  Transmission Date: 20110831
  Serious: No
  Sender: FDA-Public Use
  Company Number: A0848896A

PATIENT
  Age: 73 Year
  Sex: Male

DRUGS (9)
  1. DIOVAN [Concomitant]
  2. THEOPHYLLINE [Concomitant]
  3. METFORMIN [Concomitant]
  4. SIMVASTATIN [Concomitant]
  5. AVODART [Concomitant]
  6. FUROSEMIDE [Concomitant]
  7. FOSAMAX [Concomitant]
  8. LOVAZA [Suspect]
     Dosage: 4CAP PER DAY
     Route: 048
     Dates: start: 20090301
  9. ADVAIR [Concomitant]

REACTIONS (1)
  - RASH [None]
